FAERS Safety Report 21518147 (Version 1)
Quarter: 2022Q4

REPORT INFORMATION
  Report Type: Spontaneous
  Country: US (occurrence: US)
  Receive Date: 20221028
  Receipt Date: 20221028
  Transmission Date: 20230113
  Serious: No
  Sender: FDA-Public Use
  Company Number: US-PFIZER INC-202201203543

PATIENT
  Age: 16 Year
  Sex: Male
  Weight: 68.04 kg

DRUGS (1)
  1. GENOTROPIN [Suspect]
     Active Substance: SOMATROPIN
     Indication: Growth hormone deficiency
     Dosage: 0.8 MG, DAILY
     Dates: end: 20221002

REACTIONS (3)
  - Product dose omission issue [Not Recovered/Not Resolved]
  - Device use issue [Recovered/Resolved]
  - Device power source issue [Unknown]

NARRATIVE: CASE EVENT DATE: 20221002
